FAERS Safety Report 12974420 (Version 1)
Quarter: 2016Q4

REPORT INFORMATION
  Report Type: Report from Study
  Country: US (occurrence: US)
  Receive Date: 20161125
  Receipt Date: 20161125
  Transmission Date: 20170207
  Serious: Yes (Hospitalization)
  Sender: FDA-Public Use
  Company Number: US-ROCHE-1838884

PATIENT
  Age: 73 Year
  Sex: Female
  Weight: 56.75 kg

DRUGS (6)
  1. ESBRIET [Suspect]
     Active Substance: PIRFENIDONE
     Route: 048
  2. ESBRIET [Suspect]
     Active Substance: PIRFENIDONE
     Indication: IDIOPATHIC PULMONARY FIBROSIS
     Dosage: 1 CAPSULE 3 TIMES PER DAY
     Route: 048
     Dates: start: 20160903, end: 201609
  3. ESBRIET [Suspect]
     Active Substance: PIRFENIDONE
     Route: 048
  4. ESBRIET [Suspect]
     Active Substance: PIRFENIDONE
     Route: 048
     Dates: start: 20160919, end: 20161003
  5. OXYGEN. [Concomitant]
     Active Substance: OXYGEN
     Dosage: 12 HOURS AT NIGHT ;ONGOING: YES
     Route: 055
  6. ESBRIET [Suspect]
     Active Substance: PIRFENIDONE
     Dosage: USE AS DIRECTED BY PHYSICIAN
     Route: 048
     Dates: start: 20161018

REACTIONS (10)
  - Weight decreased [Recovered/Resolved]
  - Drug intolerance [Recovered/Resolved]
  - Dehydration [Not Recovered/Not Resolved]
  - Decreased appetite [Not Recovered/Not Resolved]
  - Asthenia [Recovered/Resolved]
  - Dizziness [Recovered/Resolved]
  - Feeding disorder [Recovered/Resolved]
  - Vomiting [Not Recovered/Not Resolved]
  - Weight decreased [Not Recovered/Not Resolved]
  - Malaise [Recovered/Resolved]

NARRATIVE: CASE EVENT DATE: 20160930
